FAERS Safety Report 7051542-4 (Version None)
Quarter: 2010Q4

REPORT INFORMATION
  Report Type: 
  Country: None (occurrence: None)
  Receive Date: 20101019
  Receipt Date: 20101014
  Transmission Date: 20110411
  Serious: Yes (Death, Life-Threatening, Other)
  Sender: FDA-Public Use
  Company Number: PHHY2010FR06203

PATIENT
  Sex: Male

DRUGS (1)
  1. TEGRETOL [Suspect]

REACTIONS (15)
  - AGITATION [None]
  - ASTHENIA [None]
  - CHOLECYSTECTOMY [None]
  - CHOLESTASIS [None]
  - CYANOSIS [None]
  - DRUG TOXICITY [None]
  - ERYTHROSIS [None]
  - FIBROSIS [None]
  - GAMMA-GLUTAMYLTRANSFERASE INCREASED [None]
  - HEPATIC STEATOSIS [None]
  - HYPERHIDROSIS [None]
  - ISCHAEMIC CARDIOMYOPATHY [None]
  - MYOCARDIAL INFARCTION [None]
  - TRANSAMINASES INCREASED [None]
  - VENTRICULAR ARRHYTHMIA [None]
